FAERS Safety Report 21865439 (Version 2)
Quarter: 2023Q4

REPORT INFORMATION
  Report Type: Spontaneous
  Country: US (occurrence: US)
  Receive Date: 20230116
  Receipt Date: 20231120
  Transmission Date: 20240110
  Serious: No
  Sender: FDA-Public Use
  Company Number: US-PFIZER INC-PV202300005806

PATIENT
  Age: 77 Year
  Sex: Female

DRUGS (1)
  1. ESTRING [Suspect]
     Active Substance: ESTRADIOL
     Indication: Urine abnormality
     Dosage: UNK

REACTIONS (3)
  - Off label use [Unknown]
  - Therapeutic product ineffective for unapproved indication [Unknown]
  - Medical device discomfort [Unknown]
